FAERS Safety Report 5150767-2 (Version None)
Quarter: 2006Q4

REPORT INFORMATION
  Report Type: 
  Country: None (occurrence: None)
  Receive Date: 20061108
  Receipt Date: 20061026
  Transmission Date: 20070319
  Serious: Yes (Other)
  Sender: FDA-Public Use
  Company Number: 2006130842

PATIENT
  Age: 55 Year
  Sex: Male

DRUGS (2)
  1. LYRICA [Suspect]
     Indication: PERIPHERAL SENSORY NEUROPATHY
     Dosage: 75 MG (75 MG, 1 IN 1 D), ORAL
     Route: 048
     Dates: start: 20060822
  2. ALL OTHER THERAPEUTIC PRODUCTS (ALL OTHER THERAPEUTIC PRODUCTS) [Suspect]

REACTIONS (2)
  - BLOOD GLUCOSE INCREASED [None]
  - LIVER FUNCTION TEST ABNORMAL [None]
